FAERS Safety Report 10546293 (Version 1)
Quarter: 2014Q4

REPORT INFORMATION
  Report Type: Report from Study
  Country: US (occurrence: US)
  Receive Date: 20141027
  Receipt Date: 20141027
  Transmission Date: 20150529
  Serious: No
  Sender: FDA-Public Use
  Company Number: US-ABBVIE-14P-163-1233667-00

PATIENT
  Age: 30 Year
  Sex: Female

DRUGS (12)
  1. ESTROVEN [Suspect]
     Active Substance: DIETARY SUPPLEMENT
     Indication: MEMORY IMPAIRMENT
  2. LUPRON DEPOT [Suspect]
     Active Substance: LEUPROLIDE ACETATE
     Indication: ENDOMETRIOSIS
     Dates: start: 20140401
  3. ESTROVEN [Suspect]
     Active Substance: DIETARY SUPPLEMENT
     Indication: HOT FLUSH
     Dosage: 1 PILL, DAILY IN THE MORNING
     Route: 048
     Dates: start: 201404
  4. ESTROVEN [Suspect]
     Active Substance: DIETARY SUPPLEMENT
     Indication: AGITATION
  5. GARCINIA CAMBOGIA [Concomitant]
     Active Substance: HYDROXYCITRIC ACID
     Indication: PRODUCT USED FOR UNKNOWN INDICATION
     Dosage: ONE PILL BY MOUTH DAILY
     Route: 048
  6. ESTROVEN [Suspect]
     Active Substance: DIETARY SUPPLEMENT
     Indication: INSOMNIA
  7. NORETHINDRONE ACETATE. [Concomitant]
     Active Substance: NORETHINDRONE ACETATE
     Indication: PRODUCT USED FOR UNKNOWN INDICATION
     Route: 048
     Dates: start: 20140401
  8. ESTROVEN [Suspect]
     Active Substance: DIETARY SUPPLEMENT
     Indication: MOOD SWINGS
  9. ESTROVEN [Suspect]
     Active Substance: DIETARY SUPPLEMENT
     Indication: DEPRESSION
  10. ESTROVEN [Suspect]
     Active Substance: DIETARY SUPPLEMENT
     Indication: DIZZINESS
  11. FERROUS GLUCONATE [Concomitant]
     Active Substance: FERROUS GLUCONATE
     Indication: PRODUCT USED FOR UNKNOWN INDICATION
     Route: 048
  12. HAIR, SKIN, AND NAIL VITAMIN [Concomitant]
     Active Substance: UNSPECIFIED INGREDIENT
     Indication: PRODUCT USED FOR UNKNOWN INDICATION
     Dosage: ONE BY MOUTH DAILY

REACTIONS (9)
  - Mood swings [Not Recovered/Not Resolved]
  - Agitation [Not Recovered/Not Resolved]
  - Insomnia [Not Recovered/Not Resolved]
  - Hypoaesthesia [Not Recovered/Not Resolved]
  - Hot flush [Not Recovered/Not Resolved]
  - Depression [Not Recovered/Not Resolved]
  - Hypotonia [Not Recovered/Not Resolved]
  - Dizziness [Not Recovered/Not Resolved]
  - Memory impairment [Not Recovered/Not Resolved]

NARRATIVE: CASE EVENT DATE: 201404
